FAERS Safety Report 5255965-5 (Version None)
Quarter: 2007Q1

REPORT INFORMATION
  Report Type: 
  Country: None (occurrence: None)
  Receive Date: 20070306
  Receipt Date: 20070221
  Transmission Date: 20070707
  Serious: Yes (Hospitalization, Other)
  Sender: FDA-Public Use
  Company Number: US-ELI_LILLY_AND_COMPANY-US200701000751

PATIENT
  Sex: Female

DRUGS (2)
  1. FORTEO [Suspect]
     Indication: OSTEOPOROSIS
     Dosage: UNK, UNK
     Dates: start: 20060201
  2. ASPIRIN [Concomitant]
     Dosage: UNK, DAILY (1/D)

REACTIONS (2)
  - UNRESPONSIVE TO STIMULI [None]
  - URINARY TRACT INFECTION [None]
